FAERS Safety Report 6086713-7 (Version None)
Quarter: 2009Q1

REPORT INFORMATION
  Report Type: 
  Country: None (occurrence: None)
  Receive Date: 20090223
  Receipt Date: 20090209
  Transmission Date: 20090719
  Serious: Yes (Other)
  Sender: FDA-Public Use
  Company Number: PHHY2008DE24771

PATIENT
  Sex: Female
  Weight: 74 kg

DRUGS (4)
  1. ZOMETA [Suspect]
     Indication: METASTASES TO BONE
     Dosage: 4 MG EVERY 4 WEEKS
     Route: 042
     Dates: start: 20020501, end: 20080901
  2. DOXORUBICIN HCL [Concomitant]
     Indication: BREAST CANCER METASTATIC
     Dosage: EVERY 4 WEEKS
     Route: 042
     Dates: start: 20080911, end: 20081105
  3. FASLODEX [Concomitant]
     Indication: BREAST CANCER METASTATIC
     Dosage: MONTHLY
     Route: 030
     Dates: start: 20040707, end: 20080911
  4. URBASON [Concomitant]
     Indication: DRUG INTOLERANCE
     Dosage: 16 MG, REDUCTION OF 4 MG EVERY THIRD DAY
     Dates: start: 20081114, end: 20081126

REACTIONS (10)
  - BONE DISORDER [None]
  - FISTULA [None]
  - IMPAIRED HEALING [None]
  - JAW DISORDER [None]
  - ORAL SURGERY [None]
  - OSTEONECROSIS [None]
  - PLASTIC SURGERY [None]
  - PURULENT DISCHARGE [None]
  - SEQUESTRECTOMY [None]
  - TOOTH EXTRACTION [None]
